FAERS Safety Report 9101647 (Version 1)
Quarter: 2013Q1

REPORT INFORMATION
  Report Type: Spontaneous
  Country: IT (occurrence: IT)
  Receive Date: 20130218
  Receipt Date: 20130218
  Transmission Date: 20140127
  Serious: Yes (Hospitalization)
  Sender: FDA-Public Use
  Company Number: IT-TEVA-385896ISR

PATIENT
  Age: 57 None
  Sex: Female

DRUGS (2)
  1. CARBOPLATINO TEVA [Suspect]
     Indication: OVARIAN CANCER
     Dosage: 400 MILLIGRAM DAILY;
     Route: 041
     Dates: start: 20121024, end: 20130206
  2. PACLITAXEL TEVA [Concomitant]
     Dosage: 250 MILLIGRAM DAILY;
     Route: 041

REACTIONS (3)
  - Abdominal pain upper [Recovered/Resolved]
  - Flushing [Recovered/Resolved]
  - Hyperhidrosis [Recovered/Resolved]
